FAERS Safety Report 5020447-2 (Version None)
Quarter: 2006Q2

REPORT INFORMATION
  Report Type: 
  Country: None (occurrence: None)
  Receive Date: 20060602
  Receipt Date: 20060524
  Transmission Date: 20061013
  Serious: Yes (Death)
  Sender: FDA-Public Use
  Company Number: 2006-143266-NL

PATIENT
  Age: 66 Year
  Sex: Male

DRUGS (16)
  1. DANAPAROID SODIUM [Suspect]
     Indication: DISSEMINATED INTRAVASCULAR COAGULATION
     Dosage: INTRAVENOUS
     Route: 042
     Dates: start: 20060314, end: 20060324
  2. DOPAMINE HDYROCHLORIDE [Concomitant]
  3. DOPAMINE HCL [Concomitant]
  4. CEFTAZIDIME [Concomitant]
  5. AMIKACIN SULFATE [Concomitant]
  6. FLUBIPROFEN AXETIL [Concomitant]
  7. GLYCEROL 2.6% [Concomitant]
  8. CARBAZOCHROME [Concomitant]
  9. TRANEXAMIC ACID [Concomitant]
  10. TRANEXAMIC [Concomitant]
  11. IMMUNOGLOBIN HUMAN [Concomitant]
  12. CEFOZOPRAN HYDROCHLORIDE [Concomitant]
  13. TIENAM [Concomitant]
  14. CLINDAMYCIN [Concomitant]
  15. METHYLPREDNISOLONE SODIUM SUCCINATE [Concomitant]
  16. FLUCONAZOLE [Concomitant]

REACTIONS (4)
  - ACUTE MYELOID LEUKAEMIA [None]
  - CEREBRAL HAEMORRHAGE [None]
  - HAEMOGLOBIN DECREASED [None]
  - SEPSIS [None]
